FAERS Safety Report 25887949 (Version 1)
Quarter: 2025Q4

REPORT INFORMATION
  Report Type: Spontaneous
  Country: EU (occurrence: None)
  Receive Date: 20251007
  Receipt Date: 20251007
  Transmission Date: 20260118
  Serious: Yes (Other)
  Sender: ORION
  Company Number: EU-Orion Corporation ORION PHARMA-TREX2025-0154

PATIENT
  Age: 64 Year
  Sex: Female

DRUGS (1)
  1. METHOTREXATE SODIUM [Suspect]
     Active Substance: METHOTREXATE SODIUM
     Indication: Product used for unknown indication
     Dosage: STRENGTH: 10 MG, SCORED TABLET
     Dates: start: 20250715

REACTIONS (3)
  - Anaemia [Unknown]
  - Purpura [Unknown]
  - Thrombocytopenia [Unknown]

NARRATIVE: CASE EVENT DATE: 20250715
